FAERS Safety Report 8798167 (Version 4)
Quarter: 2012Q4

REPORT INFORMATION
  Report Type: Report from Study
  Country: US (occurrence: US)
  Receive Date: 20120920
  Receipt Date: 20121003
  Transmission Date: 20130627
  Serious: Yes (Life-Threatening, Hospitalization)
  Sender: FDA-Public Use
  Company Number: US-JNJFOC-20120907543

PATIENT
  Age: 13 Year
  Sex: Female
  Weight: 60.8 kg

DRUGS (8)
  1. REMICADE [Suspect]
     Indication: INFLAMMATORY BOWEL DISEASE
     Route: 042
     Dates: start: 20090720
  2. REMICADE [Suspect]
     Indication: INFLAMMATORY BOWEL DISEASE
     Route: 042
     Dates: start: 20070312
  3. DEXMEDETOMIDINE [Suspect]
     Indication: PRODUCT USED FOR UNKNOWN INDICATION
  4. PROPOFOL [Suspect]
     Indication: PRODUCT USED FOR UNKNOWN INDICATION
  5. HUMIRA [Concomitant]
     Dates: start: 20090830
  6. PREDNISONE [Concomitant]
  7. METHOTREXATE [Concomitant]
  8. LANSOPRAZOLE [Concomitant]

REACTIONS (1)
  - Syncope [Recovered/Resolved]
